FAERS Safety Report 9466746 (Version 5)
Quarter: 2017Q1

REPORT INFORMATION
  Report Type: Spontaneous
  Country: US (occurrence: US)
  Receive Date: 20130820
  Receipt Date: 20170328
  Transmission Date: 20170429
  Serious: Yes (Hospitalization, Disabling, Other)
  Sender: FDA-Public Use
  Company Number: US-009507513-1308USA007535

PATIENT
  Sex: Female
  Weight: 73.47 kg

DRUGS (7)
  1. FOSAMAX [Suspect]
     Active Substance: ALENDRONATE SODIUM
     Indication: OSTEOPOROSIS
     Dosage: 70 MG, UNK
     Route: 048
     Dates: start: 2009, end: 201011
  2. VITAMIN E [Concomitant]
     Active Substance: .ALPHA.-TOCOPHEROL
     Dosage: UNK
     Dates: start: 1980
  3. AMLODIPINE BESYLATE. [Concomitant]
     Active Substance: AMLODIPINE BESYLATE
     Indication: HYPERTENSION
  4. ALENDRONATE SODIUM. [Suspect]
     Active Substance: ALENDRONATE SODIUM
     Indication: OSTEOPOROSIS
     Dosage: 70 MG, QW
     Route: 048
     Dates: start: 20080316, end: 200906
  5. FOSAMAX [Suspect]
     Active Substance: ALENDRONATE SODIUM
     Dosage: 70 MG, QW
     Route: 048
     Dates: start: 20061205, end: 200802
  6. CALCIUM (UNSPECIFIED) [Concomitant]
     Active Substance: CALCIUM
     Dosage: 500 MG, UNK
     Dates: start: 1980
  7. VITAMINS (UNSPECIFIED) [Concomitant]
     Active Substance: VITAMINS
     Dosage: UNK
     Dates: start: 1980

REACTIONS (11)
  - Low turnover osteopathy [Not Recovered/Not Resolved]
  - Haemorrhagic anaemia [Unknown]
  - Fall [Unknown]
  - Femur fracture [Unknown]
  - Osteoarthritis [Unknown]
  - Internal fixation of fracture [Unknown]
  - Impaired healing [Unknown]
  - Atypical femur fracture [Recovered/Resolved]
  - Road traffic accident [Unknown]
  - Arthralgia [Unknown]
  - Bursitis [Unknown]

NARRATIVE: CASE EVENT DATE: 200911
